FAERS Safety Report 5697005-X (Version None)
Quarter: 2008Q2

REPORT INFORMATION
  Report Type: 
  Country: None (occurrence: None)
  Receive Date: 20080408
  Receipt Date: 20070904
  Transmission Date: 20081010
  Serious: Yes (Hospitalization)
  Sender: FDA-Public Use
  Company Number: US-BAYER-US-2007-009878

PATIENT
  Age: 28 Year
  Sex: Female
  Weight: 109 kg

DRUGS (4)
  1. YASMIN [Suspect]
     Route: 048
     Dates: end: 20061210
  2. SIMVASTATIN [Concomitant]
  3. ZYRTEC [Concomitant]
  4. TOPAMAX [Concomitant]
     Indication: MIGRAINE

REACTIONS (2)
  - PULMONARY EMBOLISM [None]
  - TACHYCARDIA [None]
